FAERS Safety Report 12867416 (Version 2)
Quarter: 2016Q4

REPORT INFORMATION
  Report Type: Report from Study
  Country: BR (occurrence: BR)
  Receive Date: 20161020
  Receipt Date: 20161213
  Transmission Date: 20170207
  Serious: Yes (Death, Other)
  Sender: FDA-Public Use
  Company Number: PHHY2016BR104995

PATIENT
  Sex: Male
  Weight: 48 kg

DRUGS (2)
  1. SANDOSTATIN LAR DEPOT [Suspect]
     Active Substance: OCTREOTIDE ACETATE
     Indication: NEUROENDOCRINE TUMOUR
     Dosage: 30 MG, QMO (EVERY 28 DAYS)
     Route: 030
     Dates: start: 201606
  2. SANDOSTATIN LAR DEPOT [Suspect]
     Active Substance: OCTREOTIDE ACETATE
     Dosage: 30 MG, QMO
     Route: 065

REACTIONS (16)
  - Malignant neoplasm progression [Fatal]
  - Sluggishness [Unknown]
  - Muscular weakness [Unknown]
  - Sleep disorder due to general medical condition, insomnia type [Unknown]
  - Gait disturbance [Unknown]
  - Abdominal distension [Unknown]
  - Abdominal pain [Unknown]
  - Hepatic failure [Fatal]
  - Underweight [Not Recovered/Not Resolved]
  - Dysuria [Unknown]
  - Metastases to liver [Unknown]
  - Pain [Unknown]
  - Peripheral swelling [Unknown]
  - Fatigue [Unknown]
  - Feeding disorder [Unknown]
  - Limb discomfort [Unknown]
